FAERS Safety Report 7853332-9 (Version None)
Quarter: 2011Q4

REPORT INFORMATION
  Report Type: 
  Country: None (occurrence: None)
  Receive Date: 20111026
  Receipt Date: 20111014
  Transmission Date: 20120403
  Serious: No
  Sender: FDA-Public Use
  Company Number: US-B.I. PHARMACEUTICALS,INC./RIDGEFIELD-2009-BP-12680BP

PATIENT
  Age: 59 Year
  Sex: Female

DRUGS (7)
  1. MICARDIS [Suspect]
     Indication: HYPERTENSION
     Dosage: 40 MG
     Route: 048
     Dates: start: 20030101
  2. VITAMIN B COMPLEX CAP [Concomitant]
     Indication: SUPPLEMENTATION THERAPY
     Route: 048
  3. LIPITOR [Concomitant]
     Indication: BLOOD CHOLESTEROL INCREASED
     Route: 048
  4. TOPROL-XL [Concomitant]
     Indication: HYPERTENSION
     Route: 048
  5. ASPIRIN [Concomitant]
     Indication: PROPHYLAXIS
     Route: 048
  6. STRESS FORMULA MULTIVIT [Concomitant]
     Indication: SUPPLEMENTATION THERAPY
     Route: 048
  7. ROGAINE [Concomitant]
     Indication: ALOPECIA
     Route: 048

REACTIONS (8)
  - MUSCLE SPASMS [None]
  - ALOPECIA [None]
  - PRURITUS [None]
  - OEDEMA PERIPHERAL [None]
  - TONGUE DRY [None]
  - FEELING HOT [None]
  - ARTHRITIS [None]
  - BURNING MOUTH SYNDROME [None]
